FAERS Safety Report 18840204 (Version 6)
Quarter: 2021Q3

REPORT INFORMATION
  Report Type: Report from Study
  Country: JP (occurrence: JP)
  Receive Date: 20210204
  Receipt Date: 20210914
  Transmission Date: 20211014
  Serious: Yes (Death, Other)
  Sender: FDA-Public Use
  Company Number: JP-AMGEN-JPNSP2020107652

PATIENT
  Age: 46 Year
  Sex: Female

DRUGS (83)
  1. ROMIPLOSTIM [Suspect]
     Active Substance: ROMIPLOSTIM
     Indication: APLASTIC ANAEMIA
     Dosage: 750 MICROGRAM, QWK
     Route: 058
     Dates: start: 20191105, end: 20200608
  2. REBAMIPIDE [Concomitant]
     Active Substance: REBAMIPIDE
     Indication: PRODUCT USED FOR UNKNOWN INDICATION
     Dosage: 100 MG, TID (AFTER MEALS)
     Route: 048
     Dates: end: 20201122
  3. NEORAL [Concomitant]
     Active Substance: CYCLOSPORINE
     Indication: APLASTIC ANAEMIA
     Dosage: 100 MG, BID  (AFTER BREAKFAST AND DINNER)
     Route: 048
     Dates: end: 20201122
  4. NEORAL [Concomitant]
     Active Substance: CYCLOSPORINE
     Dosage: 200 MG, BID (AFTER BREAKFAST AND DINNER)
     Route: 048
     Dates: start: 20201207, end: 20201207
  5. CALONAL [Concomitant]
     Active Substance: ACETAMINOPHEN
     Indication: PRODUCT USED FOR UNKNOWN INDICATION
     Dosage: 400 MG, TID (AFTER MEALS)
     Route: 048
     Dates: start: 20201124, end: 20201206
  6. ALLOID G [Concomitant]
     Active Substance: SODIUM ALGINATE
     Dosage: 40 ML, TID (BETWEEN EACH MEAL)
     Route: 048
     Dates: start: 20201203, end: 20201203
  7. FEBURIC [Concomitant]
     Active Substance: FEBUXOSTAT
     Indication: HYPERURICAEMIA
     Dosage: 10 MG, QD
     Route: 048
     Dates: end: 20201122
  8. NEXIUM [Concomitant]
     Active Substance: ESOMEPRAZOLE MAGNESIUM
     Indication: PRODUCT USED FOR UNKNOWN INDICATION
     Dosage: 20 MG, QD, AFTER BREAKFAST
     Route: 048
     Dates: end: 20201122
  9. HERBAL NOS [Concomitant]
     Active Substance: HERBALS
     Dosage: 5 GRAM, TID (BEFORE MEALS)
     Route: 048
     Dates: start: 20201207, end: 20201207
  10. HERBAL NOS [Concomitant]
     Active Substance: HERBALS
     Dosage: 2.5 GRAM, TID (BEFORE MEALS)
     Route: 048
     Dates: start: 20201208, end: 20210110
  11. MIYA?BM [Concomitant]
     Active Substance: CLOSTRIDIUM BUTYRICUM SPORES STRAIN M-55
     Dosage: 4 GRAM, TID (AFTER MEALS)
     Route: 048
     Dates: start: 20201207, end: 20201207
  12. KEFRAL [Concomitant]
     Active Substance: CEFACLOR
     Dosage: 500 MILLIGRAM, TID (AFTER MEALS)
     Route: 048
     Dates: start: 20201119, end: 20201125
  13. ZEBIAX [OZENOXACIN] [Concomitant]
     Dosage: 100 G, QD
     Route: 061
     Dates: start: 20201207, end: 20201207
  14. NERIPROCT [Concomitant]
     Active Substance: DIFLUCORTOLONE VALERATE\LIDOCAINE
     Indication: HAEMORRHOIDS
     Dosage: 2 G, BID
     Route: 061
     Dates: start: 20201109, end: 20201122
  15. SAIREITO [Concomitant]
     Active Substance: HERBALS
     Dosage: 9 G, TID (BEFORE MEALS)
     Route: 048
     Dates: start: 20201209, end: 20201227
  16. CALONAL [Concomitant]
     Active Substance: ACETAMINOPHEN
     Dosage: 800 MILLIGRAM, TID (AFTER MEALS)
     Route: 048
     Dates: start: 20201207, end: 20201207
  17. ALLOID G [Concomitant]
     Active Substance: SODIUM ALGINATE
     Dosage: 40 ML, TID (BETWEEN EACH MEAL)
     Route: 048
     Dates: start: 20201207, end: 20201207
  18. NORMAL SALINE [Concomitant]
     Active Substance: SODIUM CHLORIDE
     Dosage: 50 MILLILITER
     Route: 041
     Dates: start: 20210109, end: 20210109
  19. NORMAL SALINE [Concomitant]
     Active Substance: SODIUM CHLORIDE
     Dosage: 20 MILLILITER
     Route: 041
     Dates: start: 20210110, end: 20210110
  20. POLARAMINE [Concomitant]
     Active Substance: DEXCHLORPHENIRAMINE MALEATE
     Indication: PRODUCT USED FOR UNKNOWN INDICATION
     Dosage: 1 MILLILITER, 2 TIMES/WK
     Route: 041
     Dates: start: 20201105, end: 20210108
  21. DAIKENCHUTO [Concomitant]
     Active Substance: HERBALS
     Dosage: 5 GRAM, TID (BEFORE MEALS)
     Route: 048
     Dates: start: 20201207, end: 20201207
  22. AMITIZA [Concomitant]
     Active Substance: LUBIPROSTONE
     Dosage: 24 UG, BID (AFTER BREAKFAST AND DINNER)
     Route: 048
     Dates: start: 20201124, end: 20201206
  23. NEXIUM [Concomitant]
     Active Substance: ESOMEPRAZOLE MAGNESIUM
     Dosage: 40 MILLIGRAM, QD, AFTER BREAKFAST
     Route: 048
     Dates: start: 20201207, end: 20201207
  24. FILGRASTIM BS [FILGRASTIM BIOSIMILAR 1] [Concomitant]
     Active Substance: FILGRASTIM
     Indication: APLASTIC ANAEMIA
     Dosage: 600 MICROGRAM, 2 TIMES/WK
     Route: 065
     Dates: start: 20201105, end: 20210108
  25. FUNGIZONE [Concomitant]
     Active Substance: AMPHOTERICIN B
     Dosage: 2 ML (3 TIMES A DAY)
     Route: 048
     Dates: start: 20201207, end: 20201218
  26. KEFRAL [Concomitant]
     Active Substance: CEFACLOR
     Dosage: 250 MG, TID (AFTER MEALS)
     Route: 048
     Dates: start: 20201228, end: 20210106
  27. ISODINE [Concomitant]
     Active Substance: POVIDONE-IODINE
     Indication: PRODUCT USED FOR UNKNOWN INDICATION
     Dosage: 90 G, 1 OR 2 TIMES A DAY
     Route: 061
     Dates: start: 20201207, end: 20201207
  28. PREDNISOLONE. [Concomitant]
     Active Substance: PREDNISOLONE
     Dosage: 15 MG, QD, AFTER BREAKFAST
     Route: 048
     Dates: start: 20201124, end: 20201206
  29. AMITIZA [Concomitant]
     Active Substance: LUBIPROSTONE
     Dosage: 24 UG, BID (AFTER BREAKFAST AND DINNER)
     Route: 048
     Dates: start: 20201208, end: 20210110
  30. FEBURIC [Concomitant]
     Active Substance: FEBUXOSTAT
     Dosage: 10 MG, QD, AFTER BREAKFAST
     Route: 048
     Dates: start: 20201208, end: 20210110
  31. REBAMIPIDE [Concomitant]
     Active Substance: REBAMIPIDE
     Dosage: 100 MG, TID (AFTER MEALS)
     Route: 048
     Dates: start: 20201124, end: 20201206
  32. REBAMIPIDE [Concomitant]
     Active Substance: REBAMIPIDE
     Dosage: 200 MILLIGRAM, TID (AFTER MEALS)
     Route: 048
     Dates: start: 20201207, end: 20201207
  33. BORRAZA?G [Concomitant]
     Active Substance: LIDOCAINE\TRIBENOSIDE
     Indication: HAEMORRHOIDS
     Dosage: UNK
     Route: 061
  34. PREDNISOLONE. [Concomitant]
     Active Substance: PREDNISOLONE
     Dosage: 15 MG, QD, AFTER BREAKFAST
     Route: 048
     Dates: start: 20201208, end: 20210110
  35. FEBURIC [Concomitant]
     Active Substance: FEBUXOSTAT
     Dosage: 20 MG, QD, AFTER BREAKFAST
     Route: 048
     Dates: start: 20201207, end: 20201207
  36. FEBURIC [Concomitant]
     Active Substance: FEBUXOSTAT
     Dosage: UNK
  37. NEXIUM [Concomitant]
     Active Substance: ESOMEPRAZOLE MAGNESIUM
     Dosage: 20 MG, QD, AFTER BREAKFAST
     Route: 048
     Dates: start: 20201208, end: 20210110
  38. HERBAL NOS [Concomitant]
     Active Substance: HERBALS
     Dosage: 2.5 GRAM, TID (BEFORE MEALS)
     Route: 048
     Dates: start: 20201124, end: 20201206
  39. MIYA?BM [Concomitant]
     Active Substance: CLOSTRIDIUM BUTYRICUM SPORES STRAIN M-55
     Indication: CONSTIPATION
     Dosage: 2 G, TID (AFTER MEALS)
     Route: 048
     Dates: end: 20201122
  40. MIYA?BM [Concomitant]
     Active Substance: CLOSTRIDIUM BUTYRICUM SPORES STRAIN M-55
     Dosage: 2 G, TID (AFTER MEALS)
     Route: 048
     Dates: start: 20201208, end: 20210110
  41. KEFRAL [Concomitant]
     Active Substance: CEFACLOR
     Dosage: 500 MILLIGRAM, TID (AFTER MEALS)
     Route: 048
     Dates: start: 20201116, end: 20201118
  42. KEFRAL [Concomitant]
     Active Substance: CEFACLOR
     Dosage: 250 MG, TID (AFTER MEALS)
     Route: 048
     Dates: start: 20201207, end: 20201223
  43. TAMIFLU [Concomitant]
     Active Substance: OSELTAMIVIR PHOSPHATE
     Indication: INFLUENZA
     Dosage: UNK
     Route: 048
  44. SAIREITO [Concomitant]
     Active Substance: HERBALS
     Dosage: 18 G, TID (BEFORE MEALS)
     Route: 048
     Dates: start: 20201207, end: 20201208
  45. SAIREITO [Concomitant]
     Active Substance: HERBALS
     Dosage: 18 G, TID (BEFORE MEALS)
     Route: 048
     Dates: start: 20201228, end: 20210105
  46. NORMAL SALINE [Concomitant]
     Active Substance: SODIUM CHLORIDE
     Indication: PRODUCT USED FOR UNKNOWN INDICATION
     Dosage: 100 ML, 2X/WEEK
     Route: 041
     Dates: start: 20201105, end: 20210108
  47. DAIKENCHUTO [Concomitant]
     Active Substance: HERBALS
     Indication: CONSTIPATION
     Dosage: 2.5 GRAM, TID (BEFORE MEALS)
     Route: 048
     Dates: end: 20201122
  48. DAIKENCHUTO [Concomitant]
     Active Substance: HERBALS
     Dosage: 2.5 GRAM, TID (BEFORE MEALS)
     Route: 048
     Dates: start: 20201208, end: 20210110
  49. ROMIPLOSTIM [Suspect]
     Active Substance: ROMIPLOSTIM
     Dosage: 500 MICROGRAM, QWK
     Route: 058
     Dates: start: 20200615, end: 20210104
  50. PLATELETS [Concomitant]
     Active Substance: HUMAN PLATELET, ALLOGENIC
     Indication: APLASTIC ANAEMIA
     Dosage: UNK, 2X/WEEK
     Route: 065
  51. PREDNISOLONE. [Concomitant]
     Active Substance: PREDNISOLONE
     Dosage: 30 MILLIGRAM, QD, AFTER BREAKFAST
     Route: 048
     Dates: start: 20201207, end: 20201207
  52. NEXIUM [Concomitant]
     Active Substance: ESOMEPRAZOLE MAGNESIUM
     Dosage: 20 MG, QD, AFTER BREAKFAST
     Route: 048
     Dates: start: 20201124, end: 20201206
  53. NEORAL [Concomitant]
     Active Substance: CYCLOSPORINE
     Dosage: 100 MG, BID (AFTER BREAKFAST AND DINNER)
     Route: 048
     Dates: start: 20201124, end: 20201206
  54. REVOLADE [Concomitant]
     Active Substance: ELTROMBOPAG OLAMINE
     Indication: APLASTIC ANAEMIA
     Dosage: UNK
     Route: 048
  55. ZEBIAX [OZENOXACIN] [Concomitant]
     Dosage: 100 G, QD
     Route: 061
     Dates: start: 20201228, end: 20201228
  56. LOCOID [Concomitant]
     Active Substance: HYDROCORTISONE BUTYRATE
     Indication: PRODUCT USED FOR UNKNOWN INDICATION
     Dosage: 5 G, 1 OR 2 TIMES A DAY
     Route: 061
     Dates: start: 20201106, end: 20201106
  57. ALLOID G [Concomitant]
     Active Substance: SODIUM ALGINATE
     Dosage: 20 ML, TID (BETWEEN EACH MEAL)
     Route: 048
     Dates: start: 20201204, end: 20201206
  58. ALESION LX [Concomitant]
     Indication: PRODUCT USED FOR UNKNOWN INDICATION
     Dosage: 7.5 ML, BID
     Route: 047
     Dates: start: 20210104, end: 20210104
  59. DISTILLED WATER [WATER FOR INJECTION] [Concomitant]
     Indication: PRODUCT USED FOR UNKNOWN INDICATION
     Dosage: 1 ML, 1X/WEEK
     Route: 058
     Dates: start: 20201109, end: 20210104
  60. DIFFERIN [Concomitant]
     Active Substance: ADAPALENE
     Indication: PRODUCT USED FOR UNKNOWN INDICATION
     Dosage: 30 GRAM, QD
     Route: 061
     Dates: start: 20201109, end: 20201109
  61. FEBURIC [Concomitant]
     Active Substance: FEBUXOSTAT
     Dosage: 10 MG, QD ,AFTER BREAKFAST
     Route: 048
     Dates: start: 20201124, end: 20201206
  62. REBAMIPIDE [Concomitant]
     Active Substance: REBAMIPIDE
     Dosage: 100 MG, TID (AFTER MEALS)
     Route: 048
     Dates: start: 20201208, end: 20210110
  63. HERBAL NOS [Concomitant]
     Active Substance: HERBALS
     Indication: CONSTIPATION
     Dosage: 2.5 GRAM, TID (BEFORE MEALS)
     Route: 048
     Dates: end: 20201122
  64. MIYA?BM [Concomitant]
     Active Substance: CLOSTRIDIUM BUTYRICUM SPORES STRAIN M-55
     Dosage: 2 G, TID (AFTER MEALS)
     Route: 048
     Dates: start: 20201124, end: 20201206
  65. KEFRAL [Concomitant]
     Active Substance: CEFACLOR
     Indication: ACNE
     Dosage: 250 MG, TID (AFTER MEALS)
     Route: 048
     Dates: start: 20201109, end: 20201115
  66. ZEBIAX [OZENOXACIN] [Concomitant]
     Dosage: 100 G, QD
     Route: 061
     Dates: start: 20201116, end: 20201116
  67. SAIREITO [Concomitant]
     Active Substance: HERBALS
     Dosage: 9 G, TID (BEFORE MEALS)
     Route: 048
     Dates: start: 20210106, end: 20210110
  68. CALONAL [Concomitant]
     Active Substance: ACETAMINOPHEN
     Dosage: 400 MG, TID (AFTER MEALS)
     Route: 048
     Dates: start: 20201208, end: 20210103
  69. ALLOID G [Concomitant]
     Active Substance: SODIUM ALGINATE
     Indication: PRODUCT USED FOR UNKNOWN INDICATION
     Dosage: 20 ML, TID (BETWEEN EACH MEAL)
     Route: 048
     Dates: start: 20201127, end: 20201202
  70. ALLOID G [Concomitant]
     Active Substance: SODIUM ALGINATE
     Dosage: 20 ML, TID (BETWEEN EACH MEAL)
     Route: 048
     Dates: start: 20201208, end: 20210110
  71. ISODINE [Concomitant]
     Active Substance: POVIDONE-IODINE
     Dosage: 180 GRAM, 1 OR 2 TIMES A DAY
     Route: 061
     Dates: start: 20201228, end: 20201228
  72. SOLDEM 3A [Concomitant]
     Active Substance: CARBOHYDRATES\POTASSIUM CHLORIDE\SODIUM CHLORIDE\SODIUM LACTATE
     Indication: PRODUCT USED FOR UNKNOWN INDICATION
     Dosage: 500 MILLILITER
     Route: 041
     Dates: start: 20210110, end: 20210110
  73. DAIKENCHUTO [Concomitant]
     Active Substance: HERBALS
     Dosage: 2.5 GRAM, TID (BEFORE MEALS)
     Route: 048
     Dates: start: 20201124, end: 20201206
  74. PREDNISOLONE. [Concomitant]
     Active Substance: PREDNISOLONE
     Indication: APLASTIC ANAEMIA
     Dosage: 15 MG, QD, AFTER BREAKFAST
     Route: 048
     Dates: end: 20201122
  75. AMITIZA [Concomitant]
     Active Substance: LUBIPROSTONE
     Indication: CONSTIPATION
     Dosage: 24 UG, BID (AFTER BREAKFAST AND DINNER)
     Route: 048
     Dates: end: 20201122
  76. AMITIZA [Concomitant]
     Active Substance: LUBIPROSTONE
     Dosage: 48 UG, BID (AFTER BREAKFAST AND DINNER)
     Route: 048
     Dates: start: 20201207, end: 20201207
  77. NEORAL [Concomitant]
     Active Substance: CYCLOSPORINE
     Dosage: 100 MG, BID  (AFTER BREAKFAST AND DINNER)
     Route: 048
     Dates: start: 20201208, end: 20210110
  78. LANSOPRAZOLE. [Concomitant]
     Active Substance: LANSOPRAZOLE
     Indication: PRODUCT USED FOR UNKNOWN INDICATION
     Dosage: UNK
     Route: 048
  79. FUNGIZONE [Concomitant]
     Active Substance: AMPHOTERICIN B
     Indication: PRODUCT USED FOR UNKNOWN INDICATION
     Dosage: 2 ML (3 TIMES A DAY)
     Route: 048
     Dates: start: 20201109, end: 20201120
  80. FUNGIZONE [Concomitant]
     Active Substance: AMPHOTERICIN B
     Dosage: 2 ML (3 TIMES A DAY)
     Route: 048
     Dates: start: 20201221, end: 20210101
  81. ZEBIAX [OZENOXACIN] [Concomitant]
     Indication: ACNE
     Dosage: 100 G, QD
     Route: 061
     Dates: start: 20201109, end: 20201109
  82. SAIREITO [Concomitant]
     Active Substance: HERBALS
     Indication: PRODUCT USED FOR UNKNOWN INDICATION
     Dosage: 9 G, TID (BEFORE MEALS)
     Route: 048
     Dates: start: 20201109, end: 20201206
  83. SOLDEM 1 [Concomitant]
     Active Substance: DEXTROSE\SODIUM CHLORIDE\SODIUM LACTATE
     Indication: PRODUCT USED FOR UNKNOWN INDICATION
     Dosage: 500 MILLILITER
     Route: 041
     Dates: start: 20210109, end: 20210109

REACTIONS (4)
  - Influenza [Recovered/Resolved]
  - Cerebral haemorrhage [Fatal]
  - Platelet count decreased [Fatal]
  - Off label use [Unknown]

NARRATIVE: CASE EVENT DATE: 20200103
